FAERS Safety Report 12538704 (Version 1)
Quarter: 2016Q3

REPORT INFORMATION
  Report Type: Spontaneous
  Country: FR (occurrence: FR)
  Receive Date: 20160708
  Receipt Date: 20160708
  Transmission Date: 20161109
  Serious: Yes (Hospitalization)
  Sender: FDA-Public Use
  Company Number: FR-BEH-2016070920

PATIENT
  Age: 81 Year
  Sex: Female

DRUGS (5)
  1. DISULONE [Suspect]
     Active Substance: DAPSONE\FERROUS OXALATE
     Indication: SYSTEMIC LUPUS ERYTHEMATOSUS
     Dosage: SCORED TABLET
     Route: 048
     Dates: start: 20160412, end: 20160508
  2. PRIVIGEN [Suspect]
     Active Substance: HUMAN IMMUNOGLOBULIN G
     Dosage: 20 UNK, UNK
     Route: 042
     Dates: start: 20160415, end: 20160415
  3. PRIVIGEN [Suspect]
     Active Substance: HUMAN IMMUNOGLOBULIN G
     Dosage: 40 UNK, UNK
     Route: 042
     Dates: start: 20160419, end: 20160419
  4. PRIVIGEN [Suspect]
     Active Substance: HUMAN IMMUNOGLOBULIN G
     Indication: THROMBOCYTOPENIA
     Dosage: 40 G, UNK
     Route: 042
     Dates: start: 20160414, end: 20160414
  5. PRIVIGEN [Suspect]
     Active Substance: HUMAN IMMUNOGLOBULIN G
     Dosage: 20 UNK, UNK
     Route: 042
     Dates: start: 20160418, end: 20160418

REACTIONS (2)
  - Pulmonary embolism [Recovering/Resolving]
  - Dyspnoea [Recovering/Resolving]

NARRATIVE: CASE EVENT DATE: 20160508
